FAERS Safety Report 24295916 (Version 3)
Quarter: 2024Q3

REPORT INFORMATION
  Report Type: Spontaneous
  Country: US (occurrence: None)
  Receive Date: 20240909
  Receipt Date: 20240918
  Transmission Date: 20241017
  Serious: Yes (Hospitalization, Other)
  Sender: ASTRAZENECA
  Company Number: 2024A200468

PATIENT
  Age: 24689 Day
  Sex: Male

DRUGS (1)
  1. TEZSPIRE [Suspect]
     Active Substance: TEZEPELUMAB-EKKO
     Indication: Asthma
     Route: 042

REACTIONS (9)
  - Cerebrovascular accident [Recovered/Resolved]
  - Dysarthria [Unknown]
  - Cough [Unknown]
  - Dyspnoea [Unknown]
  - Snoring [Unknown]
  - Somnolence [Unknown]
  - Obstructive airways disorder [Unknown]
  - Weight decreased [Unknown]
  - Drug ineffective [Unknown]

NARRATIVE: CASE EVENT DATE: 20240826
